FAERS Safety Report 4844122-X (Version None)
Quarter: 2005Q4

REPORT INFORMATION
  Report Type: 
  Country: None (occurrence: None)
  Receive Date: 20051202
  Receipt Date: 20051013
  Transmission Date: 20060501
  Serious: Yes (Other)
  Sender: FDA-Public Use
  Company Number: US-MERCK-0510USA07345

PATIENT
  Age: 70 Year
  Sex: Female
  Weight: 58 kg

DRUGS (1)
  1. VIOXX [Suspect]
     Indication: OSTEOARTHRITIS
     Route: 048
     Dates: end: 20040901

REACTIONS (8)
  - BLOOD CHOLESTEROL INCREASED [None]
  - DYSPHAGIA [None]
  - DYSPNOEA [None]
  - MITRAL VALVE INCOMPETENCE [None]
  - SILENT MYOCARDIAL INFARCTION [None]
  - SLEEP DISORDER [None]
  - TRICUSPID VALVE INCOMPETENCE [None]
  - VENTRICULAR DYSFUNCTION [None]
